FAERS Safety Report 20514132 (Version 5)
Quarter: 2024Q2

REPORT INFORMATION
  Report Type: Report from Study
  Country: US (occurrence: US)
  Receive Date: 20220224
  Receipt Date: 20240520
  Transmission Date: 20240716
  Serious: Yes (Hospitalization, Other)
  Sender: FDA-Public Use
  Company Number: US-AMNEAL PHARMACEUTICALS-2021-AMRX-04727

PATIENT
  Age: 64 Year
  Sex: Male

DRUGS (7)
  1. CARBIDOPA\LEVODOPA [Suspect]
     Active Substance: CARBIDOPA\LEVODOPA
     Indication: Parkinson^s disease
     Dosage: 2 CAPSULES, QID
     Route: 048
  2. CARBIDOPA\LEVODOPA [Suspect]
     Active Substance: CARBIDOPA\LEVODOPA
     Dosage: 48.75/195 MG, 61.25/124 MG
     Route: 048
     Dates: start: 20230331
  3. CARBIDOPA\LEVODOPA [Suspect]
     Active Substance: CARBIDOPA\LEVODOPA
     Dosage: 2 CAPSULES (48.75/195 MG), 5 /DAY
     Route: 048
     Dates: start: 20230414
  4. CARBIDOPA\LEVODOPA [Suspect]
     Active Substance: CARBIDOPA\LEVODOPA
     Dosage: 1 CAPSULES (48.75-195 MG), 4 /DAY
     Route: 048
     Dates: start: 20240411
  5. CARBIDOPA\LEVODOPA [Suspect]
     Active Substance: CARBIDOPA\LEVODOPA
     Dosage: 2 CAPSULES (48.75/195 MG), 5 /DAY
     Route: 048
  6. CARBIDOPA\LEVODOPA [Suspect]
     Active Substance: CARBIDOPA\LEVODOPA
     Dosage: 1 CAPSULE (36.25/145 MG), 5 /DAY IN COMBINATION WITH 1 CAPSULE (48.75/195 MG), 5 /DAY
     Route: 048
     Dates: start: 20240418
  7. CARBIDOPA\LEVODOPA [Suspect]
     Active Substance: CARBIDOPA\LEVODOPA
     Dosage: 2 CAPSULES (48.75-195 MG), 4 /DAY
     Route: 048
     Dates: start: 20240509

REACTIONS (4)
  - Cerebrovascular accident [Unknown]
  - Tremor [Unknown]
  - Visual impairment [Unknown]
  - Constipation [Unknown]

NARRATIVE: CASE EVENT DATE: 20220403
